FAERS Safety Report 24248400 (Version 1)
Quarter: 2024Q3

REPORT INFORMATION
  Report Type: Spontaneous
  Country: JP (occurrence: JP)
  Receive Date: 20240826
  Receipt Date: 20240826
  Transmission Date: 20241017
  Serious: Yes (Hospitalization)
  Sender: MACLEODS
  Company Number: JP-MACLEODS PHARMA-MAC2024048929

PATIENT

DRUGS (1)
  1. METHIMAZOLE [Suspect]
     Active Substance: METHIMAZOLE
     Indication: Graves^ disease
     Route: 065

REACTIONS (4)
  - Aplastic anaemia [Recovering/Resolving]
  - Bone marrow failure [Recovering/Resolving]
  - Plasmacytosis [Recovering/Resolving]
  - Pneumonia streptococcal [Recovering/Resolving]
